FAERS Safety Report 8394265-1 (Version None)
Quarter: 2012Q2

REPORT INFORMATION
  Report Type: 
  Country: None (occurrence: None)
  Receive Date: 20120530
  Receipt Date: 20120522
  Transmission Date: 20120825
  Serious: Yes (Life-Threatening)
  Sender: FDA-Public Use
  Company Number: US-JNJFOC-20120407221

PATIENT
  Sex: Male

DRUGS (2)
  1. INTELENCE [Suspect]
     Indication: HIV INFECTION
     Route: 048
  2. EDURANT [Suspect]
     Indication: HIV INFECTION
     Route: 048

REACTIONS (2)
  - RASH GENERALISED [None]
  - PYREXIA [None]
